FAERS Safety Report 9404404 (Version 1)
Quarter: 2013Q3

REPORT INFORMATION
  Report Type: Spontaneous
  Country: US (occurrence: None)
  Receive Date: 20130711
  Receipt Date: 20130711
  Transmission Date: 20140515
  Serious: Yes (Other)
  Sender: FDA-Public Use
  Company Number: AUR-APL-2013-05768

PATIENT
  Age: 21 Year
  Sex: Male

DRUGS (6)
  1. PAROXETINE (PAROXETINE) [Suspect]
     Indication: AUTISM
  2. SERTRALINE (SERTRALINE) [Suspect]
     Indication: AUTISM
  3. CLONIDINE (CLONIDINE) [Suspect]
     Indication: AUTISM
  4. VALPROATE [Suspect]
     Indication: AUTISM
  5. CLONAZEPAM (CLONAZEPAM) (CLONAZEPAM) [Suspect]
     Indication: AUTISM
  6. CARBAMAZEPINE (CARBAMAZEPINE) [Suspect]
     Indication: PRODUCT USED FOR UNKNOWN INDICATION

REACTIONS (2)
  - Gastrointestinal disorder [None]
  - Irritability [None]
